FAERS Safety Report 18528598 (Version 1)
Quarter: 2020Q4

REPORT INFORMATION
  Report Type: Spontaneous
  Country: MY (occurrence: MY)
  Receive Date: 20201120
  Receipt Date: 20201120
  Transmission Date: 20210114
  Serious: Yes (Other)
  Sender: FDA-Public Use
  Company Number: MY-ASTRAZENECA-2020SF52759

PATIENT
  Sex: Male

DRUGS (1)
  1. TAGRISSO [Suspect]
     Active Substance: OSIMERTINIB
     Indication: NON-SMALL CELL LUNG CANCER STAGE IV
     Dosage: 80.0UG UNKNOWN
     Route: 048
     Dates: start: 20201017

REACTIONS (2)
  - Headache [Unknown]
  - Haemoptysis [Unknown]

NARRATIVE: CASE EVENT DATE: 20201114
